FAERS Safety Report 16849946 (Version 1)
Quarter: 2019Q3

REPORT INFORMATION
  Report Type: Spontaneous
  Country: US (occurrence: US)
  Receive Date: 20190925
  Receipt Date: 20190925
  Transmission Date: 20191005
  Serious: No
  Sender: FDA-Public Use
  Company Number: US-BAYER-2019-174937

PATIENT
  Sex: Male

DRUGS (1)
  1. BETASERON [Suspect]
     Active Substance: INTERFERON BETA-1B

REACTIONS (8)
  - Pyrexia [None]
  - Fear of injection [None]
  - Drug ineffective [None]
  - Injection site mass [Not Recovered/Not Resolved]
  - Headache [None]
  - Injection site pain [None]
  - Vein discolouration [Not Recovered/Not Resolved]
  - Gait disturbance [None]
